FAERS Safety Report 14688039 (Version 2)
Quarter: 2018Q2

REPORT INFORMATION
  Report Type: Spontaneous
  Country: US (occurrence: US)
  Receive Date: 20180328
  Receipt Date: 20180625
  Transmission Date: 20180711
  Serious: Yes (Other)
  Sender: FDA-Public Use
  Company Number: US-PFIZER INC-2018124870

PATIENT
  Age: 64 Year
  Sex: Female
  Weight: 76.64 kg

DRUGS (13)
  1. METHOTREXATE. [Suspect]
     Active Substance: METHOTREXATE
     Dosage: 2 DF, WEEKLY (2 TABS PO WEEKLY )
     Route: 048
  2. DUONEB [Concomitant]
     Active Substance: ALBUTEROL SULFATE\IPRATROPIUM BROMIDE
     Indication: DYSPNOEA
  3. METHOTREXATE. [Suspect]
     Active Substance: METHOTREXATE
     Dosage: 4 DF, WEEKLY (4 TABS PO WEEKLY )
     Route: 048
  4. XOPENEX [Concomitant]
     Active Substance: LEVALBUTEROL HYDROCHLORIDE
     Dosage: UNK UNK, 4X/DAY
  5. PREDNISONE. [Concomitant]
     Active Substance: PREDNISONE
     Dosage: 40 MG, 2X/DAY
     Route: 048
  6. DUONEB [Concomitant]
     Active Substance: ALBUTEROL SULFATE\IPRATROPIUM BROMIDE
     Indication: WHEEZING
     Dosage: UNK UNK, AS NEEDED [IPRATROPIUM BROMIDE: 3 MG, ALBUTEROL SULFATE: 0.5MG]
     Route: 055
  7. FORTEO [Concomitant]
     Active Substance: TERIPARATIDE
     Dosage: 0.08 ML, (INJECT 20 MICROGRAMS INTO THE SKIN 4X WEEKLY )
     Route: 058
  8. METHOTREXATE. [Suspect]
     Active Substance: METHOTREXATE
     Indication: RHEUMATOID ARTHRITIS
     Dosage: 22.5 MG, WEEKLY, (3 TABS (7.5MG) PO WEEKLY)
     Route: 048
     Dates: start: 201605, end: 20170924
  9. FOLIC ACID. [Concomitant]
     Active Substance: FOLIC ACID
     Dosage: 1 MG, DAILY
     Route: 048
  10. ELMIRON [Concomitant]
     Active Substance: PENTOSAN POLYSULFATE SODIUM
     Dosage: 100 MG, 3X/DAY
     Route: 048
  11. NASONEX [Concomitant]
     Active Substance: MOMETASONE FUROATE
     Dosage: UNK UNK, DAILY 50 MCG/ACTUATION
  12. METHOTREXATE. [Suspect]
     Active Substance: METHOTREXATE
     Dosage: UNK, WEEKLY(3.5 TABS PO WEEKLY)
     Route: 048
  13. PROAIR HFA [Concomitant]
     Active Substance: ALBUTEROL SULFATE
     Dosage: 90 UG, UNK
     Route: 055

REACTIONS (10)
  - Pseudomonas infection [Unknown]
  - Liver disorder [Unknown]
  - Fibrosis [Unknown]
  - Hepatic enzyme increased [Recovered/Resolved with Sequelae]
  - Hepatic steatosis [Unknown]
  - Pancreatic disorder [Unknown]
  - Paraesthesia [Unknown]
  - Drug ineffective [Unknown]
  - Hyperplasia [Unknown]
  - Urinary tract infection [Unknown]

NARRATIVE: CASE EVENT DATE: 201610
